FAERS Safety Report 5981897-0 (Version None)
Quarter: 2008Q4

REPORT INFORMATION
  Report Type: 
  Country: None (occurrence: None)
  Receive Date: 20081205
  Receipt Date: 20081126
  Transmission Date: 20090506
  Serious: Yes (Death, Disabling)
  Sender: FDA-Public Use
  Company Number: JP-MERCK-0811USA02532

PATIENT
  Age: 58 Year
  Sex: Female

DRUGS (11)
  1. PEPCID RPD [Suspect]
     Indication: GASTRIC ULCER
     Route: 048
     Dates: start: 20081021, end: 20081029
  2. ASPIRIN [Concomitant]
     Indication: ACUTE MYOCARDIAL INFARCTION
     Route: 065
     Dates: start: 20081021, end: 20081029
  3. PLAVIX [Concomitant]
     Indication: ACUTE MYOCARDIAL INFARCTION
     Route: 048
     Dates: start: 20081021, end: 20081029
  4. HEPARIN SODIUM [Concomitant]
     Indication: ACUTE MYOCARDIAL INFARCTION
     Dates: start: 20081014, end: 20081022
  5. MIDAZOLAM HCL [Concomitant]
     Indication: DYSKINESIA
     Dates: start: 20081015, end: 20081024
  6. OMEPRAL [Concomitant]
     Indication: GASTROINTESTINAL HAEMORRHAGE
     Route: 042
     Dates: start: 20081015, end: 20081021
  7. LASIX [Concomitant]
     Indication: ACUTE MYOCARDIAL INFARCTION
     Route: 042
     Dates: start: 20081016
  8. METILON [Concomitant]
     Indication: PYREXIA
     Route: 042
     Dates: start: 20081019, end: 20081023
  9. MODACIN [Concomitant]
     Indication: PYREXIA
     Route: 042
     Dates: start: 20081020, end: 20081026
  10. MODACIN [Concomitant]
     Indication: INFECTION
     Route: 042
     Dates: start: 20081020, end: 20081026
  11. WARFARIN POTASSIUM [Concomitant]
     Indication: ACUTE MYOCARDIAL INFARCTION
     Route: 048
     Dates: start: 20081021, end: 20081029

REACTIONS (2)
  - NEUROLEPTIC MALIGNANT SYNDROME [None]
  - RHABDOMYOLYSIS [None]
